FAERS Safety Report 8860454 (Version 1)
Quarter: 2012Q4

REPORT INFORMATION
  Report Type: 
  Country: GB (occurrence: GB)
  Receive Date: 20121025
  Receipt Date: 20121025
  Transmission Date: 20130627
  Serious: Yes (Other)
  Sender: FDA-Public Use
  Company Number: GB-JNJFOC-20121009333

PATIENT

DRUGS (4)
  1. DOXORUBICIN [Suspect]
     Indication: HODGKIN^S DISEASE
     Dosage: receive between 3 and 6 cycles
     Route: 042
  2. BLEOMYCIN [Suspect]
     Indication: HODGKIN^S DISEASE
     Dosage: receive between 3 and 6 cycles
     Route: 065
  3. VINBLASTINE [Suspect]
     Indication: HODGKIN^S DISEASE
     Dosage: receive between 3 and 6 cycles
     Route: 065
  4. DACARBAZINE [Suspect]
     Indication: HODGKIN^S DISEASE
     Dosage: receive between 3 and 6 cycles
     Route: 065

REACTIONS (5)
  - Psychotic disorder [Unknown]
  - Tuberculosis [Unknown]
  - Respiratory disorder [Unknown]
  - Liver function test abnormal [Unknown]
  - Neutropenic sepsis [Unknown]
